FAERS Safety Report 12011574 (Version 1)
Quarter: 2016Q1

REPORT INFORMATION
  Report Type: Spontaneous
  Country: DE (occurrence: DE)
  Receive Date: 20160205
  Receipt Date: 20160205
  Transmission Date: 20160526
  Serious: Yes (Hospitalization)
  Sender: FDA-Public Use
  Company Number: DE-ASTRAZENECA-2016SE09649

PATIENT
  Age: 56 Year
  Sex: Male
  Weight: 100 kg

DRUGS (3)
  1. BELOC-ZOK [Suspect]
     Active Substance: METOPROLOL SUCCINATE
     Indication: BLOOD PRESSURE ABNORMAL
     Route: 042
  2. BELOC-ZOK [Suspect]
     Active Substance: METOPROLOL SUCCINATE
     Indication: HYPERTENSION
     Route: 048
     Dates: start: 201506
  3. METOPROLOL. [Concomitant]
     Active Substance: METOPROLOL
     Dates: start: 2014

REACTIONS (4)
  - Hypertensive crisis [Unknown]
  - Drug ineffective [Unknown]
  - Product use issue [Unknown]
  - Off label use [Unknown]
